FAERS Safety Report 4431371-8 (Version None)
Quarter: 2004Q3

REPORT INFORMATION
  Report Type: 
  Country: None (occurrence: None)
  Receive Date: 20040824
  Receipt Date: 20020910
  Transmission Date: 20050211
  Serious: Yes (Death, Hospitalization)
  Sender: FDA-Public Use
  Company Number: US-ROCHE-321278

PATIENT
  Age: 44 Year
  Sex: Male
  Weight: 78 kg

DRUGS (7)
  1. PEG-INTERFERON ALFA 2A (RO 25-8310) [Suspect]
     Route: 058
     Dates: start: 20020513, end: 20020910
  2. RIBAVIRIN [Suspect]
     Route: 048
     Dates: start: 20020513, end: 20020910
  3. NEUPOGEN [Concomitant]
     Dosage: 300 MCG GIVEN APPROXIMATELY 36 HOURS BEFORE INTERFERON INJECTIONS.
     Route: 058
  4. ZERIT [Concomitant]
     Route: 048
  5. EPIVIR [Concomitant]
     Route: 048
  6. ABACAVIR [Concomitant]
  7. KALETRA [Concomitant]
     Route: 048

REACTIONS (31)
  - ABDOMINAL PAIN [None]
  - ANAEMIA [None]
  - AORTIC DISORDER [None]
  - ARTERIOSCLEROSIS [None]
  - ATELECTASIS [None]
  - BLOOD TEST ABNORMAL [None]
  - BRONCHOPNEUMONIA [None]
  - CHEST PAIN [None]
  - CHEST X-RAY ABNORMAL [None]
  - CONVULSION [None]
  - FEELING ABNORMAL [None]
  - HAEMATURIA [None]
  - HAEMOLYTIC ANAEMIA [None]
  - HAEMOLYTIC URAEMIC SYNDROME [None]
  - LARYNGEAL DISORDER [None]
  - LEUKOCYTOSIS [None]
  - NAUSEA [None]
  - NERVOUS SYSTEM DISORDER [None]
  - PROTHROMBIN TIME PROLONGED [None]
  - PULMONARY CONGESTION [None]
  - RED BLOOD CELL SCHISTOCYTES PRESENT [None]
  - RENAL FAILURE ACUTE [None]
  - RESPIRATORY RATE INCREASED [None]
  - SCAR [None]
  - SPLEEN CONGESTION [None]
  - TACHYCARDIA [None]
  - THROMBOTIC THROMBOCYTOPENIC PURPURA [None]
  - TRACHEAL DISORDER [None]
  - TROPONIN I INCREASED [None]
  - VOMITING [None]
  - WEIGHT DECREASED [None]
